FAERS Safety Report 9893987 (Version 1)
Quarter: 2014Q1

REPORT INFORMATION
  Report Type: Spontaneous
  Country: US (occurrence: US)
  Receive Date: 20140213
  Receipt Date: 20140213
  Transmission Date: 20141002
  Serious: No
  Sender: FDA-Public Use
  Company Number: US-PFIZER INC-2014040991

PATIENT
  Age: 53 Year
  Sex: Male
  Weight: 118 kg

DRUGS (1)
  1. NICOTROL INHALER [Suspect]
     Indication: SMOKING CESSATION THERAPY
     Dosage: 10 MG, UNKNOWN FREQUENCY, SIX OR EIGHT CARTRIDGES IN A DAY
     Dates: start: 201402

REACTIONS (1)
  - Drug ineffective [Unknown]
